FAERS Safety Report 4451507-2 (Version None)
Quarter: 2004Q3

REPORT INFORMATION
  Report Type: 
  Country: None (occurrence: None)
  Receive Date: 20040915
  Receipt Date: 20040902
  Transmission Date: 20050211
  Serious: Yes (Death)
  Sender: FDA-Public Use
  Company Number: USA-2003-0007534

PATIENT
  Age: 39 Year
  Sex: Male
  Weight: 73.9 kg

DRUGS (7)
  1. OXYCODONE HCL [Suspect]
     Dosage: UNK
     Route: 065
  2. SERTRALINE HYDROCHLORIDE [Suspect]
     Dosage: UNK
     Route: 065
  3. DIAZEPAM [Suspect]
     Dosage: UNK
     Route: 065
  4. CAFFEINE (CAFFEINE) [Suspect]
     Dosage: UNK
     Route: 065
  5. CANNABIS (CANNABIS) [Suspect]
     Dosage: UNK
     Route: 065
  6. NICOTINE [Suspect]
     Dosage: UNK
     Route: 065
  7. ACETAMINOPHEN [Suspect]
     Dosage: UNK
     Route: 065

REACTIONS (12)
  - ACUTE PULMONARY OEDEMA [None]
  - ASPIRATION [None]
  - COMPLETED SUICIDE [None]
  - CONTUSION [None]
  - GUN SHOT WOUND [None]
  - HAEMORRHAGE [None]
  - JAW FRACTURE [None]
  - LACERATION [None]
  - PERIRENAL HAEMATOMA [None]
  - RETROPERITONEAL HAEMATOMA [None]
  - SKULL FRACTURE [None]
  - TOXICOLOGIC TEST ABNORMAL [None]
